FAERS Safety Report 7337199-3 (Version None)
Quarter: 2011Q1

REPORT INFORMATION
  Report Type: 
  Country: None (occurrence: None)
  Receive Date: 20110308
  Receipt Date: 20110301
  Transmission Date: 20110831
  Serious: No
  Sender: FDA-Public Use
  Company Number: US-PFIZER INC-2011025992

PATIENT
  Age: 80 Year

DRUGS (3)
  1. HYDROCODONE [Concomitant]
     Dosage: UNK
  2. LYRICA [Suspect]
     Indication: PAIN
  3. LYRICA [Suspect]
     Indication: DIABETIC NEUROPATHY
     Dosage: 75, 2X/DAY
     Route: 048
     Dates: start: 20110101, end: 20110201

REACTIONS (1)
  - BLOOD PRESSURE DECREASED [None]
